FAERS Safety Report 6926054-6 (Version None)
Quarter: 2010Q3

REPORT INFORMATION
  Report Type: 
  Country: None (occurrence: None)
  Receive Date: 20100816
  Receipt Date: 20100808
  Transmission Date: 20110219
  Serious: Yes (Death)
  Sender: FDA-Public Use
  Company Number: IN-BAXTER-2009BH012530

PATIENT
  Age: 59 Year
  Sex: Male

DRUGS (2)
  1. DIANEAL [Suspect]
     Indication: PERITONEAL DIALYSIS
     Route: 033
     Dates: start: 20090727, end: 20090802
  2. DIANEAL [Suspect]
     Route: 033
     Dates: start: 20090730, end: 20090802

REACTIONS (2)
  - PNEUMONIA [None]
  - SEPTIC SHOCK [None]
